FAERS Safety Report 9816292 (Version 1)
Quarter: 2014Q1

REPORT INFORMATION
  Report Type: Spontaneous
  Country: US (occurrence: US)
  Receive Date: 20140114
  Receipt Date: 20140114
  Transmission Date: 20141002
  Serious: No
  Sender: FDA-Public Use
  Company Number: US-BAYER-2013-158101

PATIENT
  Age: 87 Year
  Sex: Female

DRUGS (1)
  1. ESTRADIOL [Suspect]
     Route: 062

REACTIONS (4)
  - Drug ineffective [None]
  - Burning sensation [None]
  - Insomnia [None]
  - Feeling abnormal [None]
